FAERS Safety Report 11884659 (Version 1)
Quarter: 2016Q1

REPORT INFORMATION
  Report Type: Spontaneous
  Country: FR (occurrence: FR)
  Receive Date: 20160104
  Receipt Date: 20160104
  Transmission Date: 20160526
  Serious: Yes (Life-Threatening, Other)
  Sender: FDA-Public Use
  Company Number: FR-BRISTOL-MYERS SQUIBB COMPANY-10380285

PATIENT
  Age: 0 Day
  Sex: Male
  Weight: 3 kg

DRUGS (10)
  1. ZOVIRAX [Concomitant]
     Active Substance: ACYCLOVIR
     Indication: PRODUCT USED FOR UNKNOWN INDICATION
     Dosage: UNK
     Route: 064
  2. BACTRIM [Concomitant]
     Active Substance: SULFAMETHOXAZOLE\TRIMETHOPRIM
     Indication: PRODUCT USED FOR UNKNOWN INDICATION
     Dosage: EXPOSURE DURING GESTATION.
     Route: 064
     Dates: end: 199704
  3. RETROVIR [Suspect]
     Active Substance: ZIDOVUDINE
     Dosage: UNK
     Route: 064
     Dates: start: 19970610, end: 19970610
  4. RETROVIR [Suspect]
     Active Substance: ZIDOVUDINE
     Indication: PRODUCT USED FOR UNKNOWN INDICATION
     Dosage: 100 MG, TID
     Route: 064
     Dates: start: 199611
  5. RETROVIR [Suspect]
     Active Substance: ZIDOVUDINE
     Indication: PRODUCT USED FOR UNKNOWN INDICATION
     Dosage: UNK
     Route: 048
     Dates: start: 19970610, end: 19970627
  6. STAVUDINE. [Suspect]
     Active Substance: STAVUDINE
     Indication: PRODUCT USED FOR UNKNOWN INDICATION
     Dosage: UNK
     Route: 064
     Dates: end: 199611
  7. EPIVIR [Suspect]
     Active Substance: LAMIVUDINE
     Indication: PRODUCT USED FOR UNKNOWN INDICATION
     Dosage: 150 MG, BID
     Route: 064
  8. TRIFLUCAN [Concomitant]
     Active Substance: FLUCONAZOLE
     Indication: PRODUCT USED FOR UNKNOWN INDICATION
     Dosage: 800 MG, QD
     Route: 064
  9. CRIXIVAN [Suspect]
     Active Substance: INDINAVIR SULFATE
     Indication: PRODUCT USED FOR UNKNOWN INDICATION
     Dosage: 1200 MG, BID
     Route: 064
  10. CYMEVAN [Concomitant]
     Active Substance: GANCICLOVIR
     Indication: PRODUCT USED FOR UNKNOWN INDICATION
     Dosage: UNK
     Route: 064
     Dates: end: 199611

REACTIONS (13)
  - Cheilitis [Unknown]
  - Erythema [Unknown]
  - Glossitis [Recovered/Resolved]
  - Neonatal respiratory distress syndrome [Recovered/Resolved]
  - Mucosal inflammation [Recovered/Resolved]
  - Hypertonia [Unknown]
  - Anaemia [Unknown]
  - Stridor [Not Recovered/Not Resolved]
  - Conjunctivitis [Unknown]
  - Vomiting [Unknown]
  - Foetal exposure during pregnancy [Recovered/Resolved]
  - Rhinitis [Unknown]
  - Keloid scar [Unknown]

NARRATIVE: CASE EVENT DATE: 19970610
